FAERS Safety Report 15597163 (Version 2)
Quarter: 2018Q4

REPORT INFORMATION
  Report Type: Spontaneous
  Country: DE (occurrence: DE)
  Receive Date: 20181108
  Receipt Date: 20181122
  Transmission Date: 20190205
  Serious: Yes (Other)
  Sender: FDA-Public Use
  Company Number: DE-AUROBINDO-AUR-APL-2018-053583

PATIENT
  Age: 44 Year
  Sex: Male
  Weight: 96 kg

DRUGS (5)
  1. PANTOPRAZOLE AUROBINDO GASTRO-RESISTANT TABLETS 40MG [Suspect]
     Active Substance: PANTOPRAZOLE SODIUM
     Indication: PRODUCT USED FOR UNKNOWN INDICATION
     Dosage: 40 MILLIGRAM, DAILY (40 MG PRO TAG MORGENS,DANN AUF 20MG REDUZIERT)
     Route: 048
     Dates: start: 201804
  2. IRBESARTAN. [Concomitant]
     Active Substance: IRBESARTAN
     Indication: PRODUCT USED FOR UNKNOWN INDICATION
     Dosage: 75 MILLIGRAM, TWO TIMES A DAY (75 MG 1-0-1)
     Route: 048
     Dates: start: 2010, end: 201809
  3. METEX                              /00082702/ [Suspect]
     Active Substance: METFORMIN HYDROCHLORIDE
     Indication: PRODUCT USED FOR UNKNOWN INDICATION
     Dosage: 15 MILLIGRAM, EVERY WEEK (15 MG PRO WOCHE)
     Route: 058
     Dates: start: 2015
  4. HYDROCHLOROTHIAZIDE W/METOPROLOL [Concomitant]
     Active Substance: HYDROCHLOROTHIAZIDE\METOPROLOL
     Indication: PRODUCT USED FOR UNKNOWN INDICATION
     Dosage: 1 DOSAGE FORM, DAILY (95/12,5 MG 1-0-0)
     Route: 048
     Dates: start: 2010
  5. PREDNISOLONE. [Suspect]
     Active Substance: PREDNISOLONE
     Indication: PRODUCT USED FOR UNKNOWN INDICATION
     Dosage: 2.5 MILLIGRAM, DAILY (2,5 MG PRO TAG)
     Route: 048
     Dates: start: 2015

REACTIONS (1)
  - Oesophageal candidiasis [Unknown]

NARRATIVE: CASE EVENT DATE: 20180903
